FAERS Safety Report 6710564-0 (Version None)
Quarter: 2010Q2

REPORT INFORMATION
  Report Type: 
  Country: None (occurrence: None)
  Receive Date: 20100504
  Receipt Date: 20100330
  Transmission Date: 20101027
  Serious: No
  Sender: FDA-Public Use
  Company Number: US-BAYER-201018597NA

PATIENT
  Age: 37 Year
  Sex: Male
  Weight: 105 kg

DRUGS (5)
  1. ULTRAVIST (PHARMACY BULK) [Suspect]
     Indication: RENAL CYST
     Dosage: TOTAL DAILY DOSE: 100 ML  UNIT DOSE: 500 ML
     Route: 042
     Dates: start: 20100330, end: 20100330
  2. SALINE [Concomitant]
     Route: 042
     Dates: start: 20100330, end: 20100330
  3. PREDNISONE [Concomitant]
     Indication: PREMEDICATION
  4. BENADRYL [Concomitant]
     Indication: PREMEDICATION
  5. CIMETIDINE [Concomitant]
     Indication: PREMEDICATION

REACTIONS (1)
  - THROAT IRRITATION [None]
